FAERS Safety Report 7046976-8 (Version None)
Quarter: 2010Q4

REPORT INFORMATION
  Report Type: 
  Country: None (occurrence: None)
  Receive Date: 20101015
  Receipt Date: 20101007
  Transmission Date: 20110411
  Serious: Yes (Other)
  Sender: FDA-Public Use
  Company Number: BR-RANBAXY-2010R5-38623

PATIENT

DRUGS (2)
  1. AMOXICILLIN AND CLAVULANATE POTASSIUM [Suspect]
     Indication: PNEUMONIA
     Dosage: (250+62.5) MG / 5 ML, TID
     Route: 048
     Dates: start: 20101005
  2. AMOXICILLIN AND CLAVULANATE POTASSIUM [Suspect]
     Dosage: (250+62.5) MG / 5 ML, TID
     Route: 048
     Dates: end: 20101006

REACTIONS (6)
  - ABDOMINAL PAIN [None]
  - COLD SWEAT [None]
  - DIARRHOEA [None]
  - FATIGUE [None]
  - HAEMOPTYSIS [None]
  - PALLOR [None]
